FAERS Safety Report 6235951-9 (Version None)
Quarter: 2009Q2

REPORT INFORMATION
  Report Type: 
  Country: None (occurrence: None)
  Receive Date: 20090617
  Receipt Date: 20090617
  Transmission Date: 20091009
  Serious: No
  Sender: FDA-Public Use
  Company Number: None

PATIENT
  Sex: Male
  Weight: 65.7716 kg

DRUGS (2)
  1. ZICAM ALLERGY RELIEF GEL SWABS HOMEOPATHIC [Suspect]
     Indication: SINUS CONGESTION
     Dosage: 1 - 2 SWABS A DAY I USED 8 NASAL
     Route: 045
     Dates: start: 20090312, end: 20090315
  2. ZICAM ALLERGY RELIEF GEL SWABS HOMEOPATHIC [Suspect]
     Indication: SINUS HEADACHE
     Dosage: 1 - 2 SWABS A DAY I USED 8 NASAL
     Route: 045
     Dates: start: 20090312, end: 20090315

REACTIONS (2)
  - AGEUSIA [None]
  - ANOSMIA [None]
